FAERS Safety Report 22341382 (Version 1)
Quarter: 2023Q2

REPORT INFORMATION
  Report Type: Spontaneous
  Country: JP (occurrence: JP)
  Receive Date: 20230518
  Receipt Date: 20230518
  Transmission Date: 20230721
  Serious: Yes (Other)
  Sender: FDA-Public Use
  Company Number: JP-MSD-M2023-18602

PATIENT
  Age: 7 Decade
  Sex: Female

DRUGS (5)
  1. KEYTRUDA [Suspect]
     Active Substance: PEMBROLIZUMAB
     Indication: Triple negative breast cancer
     Dosage: 200 MILLIGRAM, Q3W
     Route: 041
     Dates: start: 202211
  2. DOXORUBICIN HYDROCHLORIDE [Concomitant]
     Active Substance: DOXORUBICIN HYDROCHLORIDE
     Dosage: 60 MILLIGRAM/SQ. METER, 3 TIMES/3 WEEKS
     Route: 042
     Dates: start: 202303
  3. CYCLOPHOSPHAMIDE [Concomitant]
     Active Substance: CYCLOPHOSPHAMIDE
     Dosage: 600 MILLIGRAM/SQ. METER,3 TIMES/3 WEEKS
     Route: 042
     Dates: start: 202303
  4. PACLITAXEL [Concomitant]
     Active Substance: PACLITAXEL
     Dosage: 80 MILLIGRAM/SQ. METER, 4 TIMES/WEEK
     Route: 042
     Dates: start: 202211, end: 202303
  5. CARBOPLATIN [Concomitant]
     Active Substance: CARBOPLATIN
     Dosage: AUC1.5, 4 TIMES/WEEK
     Route: 065
     Dates: start: 202211, end: 202303

REACTIONS (2)
  - Hypothalamo-pituitary disorder [Recovered/Resolved]
  - Gait disturbance [Unknown]

NARRATIVE: CASE EVENT DATE: 20230101
